FAERS Safety Report 19715095 (Version 1)
Quarter: 2021Q3

REPORT INFORMATION
  Report Type: Report from Study
  Country: US (occurrence: US)
  Receive Date: 20210818
  Receipt Date: 20210818
  Transmission Date: 20211014
  Serious: Yes (Hospitalization, Other)
  Sender: FDA-Public Use
  Company Number: US-BAYER-2021-190737

PATIENT
  Age: 79 Year
  Sex: Female

DRUGS (1)
  1. BETASERON [Suspect]
     Active Substance: INTERFERON BETA-1B
     Indication: MULTIPLE SCLEROSIS
     Dosage: 0.3 MG, QOD
     Route: 058

REACTIONS (4)
  - Septic shock [None]
  - Product dose omission issue [Recovered/Resolved]
  - Surgery [None]
  - Toe amputation [None]

NARRATIVE: CASE EVENT DATE: 20210501
